FAERS Safety Report 7042656-3 (Version None)
Quarter: 2010Q4

REPORT INFORMATION
  Report Type: 
  Country: None (occurrence: None)
  Receive Date: 20101013
  Receipt Date: 20091030
  Transmission Date: 20110411
  Serious: No
  Sender: FDA-Public Use
  Company Number: US-ASTRAZENECA-2009SE24106

PATIENT
  Age: 45 Year
  Sex: Female
  Weight: 49.9 kg

DRUGS (6)
  1. SYMBICORT [Suspect]
     Dosage: 1 PUFF FOUR TIMES A DAY
     Route: 055
     Dates: start: 20090101, end: 20090101
  2. OMEPRAZOLE [Concomitant]
  3. SPIRIVA [Concomitant]
  4. ASPIRIN [Concomitant]
  5. OSCAL [Concomitant]
  6. WELCHOL [Concomitant]

REACTIONS (1)
  - CHEST DISCOMFORT [None]
